FAERS Safety Report 6243862-8 (Version None)
Quarter: 2009Q2

REPORT INFORMATION
  Report Type: 
  Country: None (occurrence: None)
  Receive Date: 20090623
  Receipt Date: 20090615
  Transmission Date: 20091009
  Serious: Yes (Hospitalization)
  Sender: FDA-Public Use
  Company Number: ABIAC-09-0279

PATIENT
  Age: 46 Year
  Sex: Female

DRUGS (3)
  1. ABRAXANE [Suspect]
     Indication: BREAST CANCER
     Dosage: (132 MG,Q WEEK X 3 WKS, OFF 1 WK),INTRAVENOUS
     Route: 042
     Dates: start: 20081201, end: 20090224
  2. NEURONTIN [Concomitant]
  3. ARIMIDEX [Concomitant]

REACTIONS (8)
  - BALLISMUS [None]
  - BLOOD THYROID STIMULATING HORMONE INCREASED [None]
  - CEREBRAL ISCHAEMIA [None]
  - CHOREOATHETOSIS [None]
  - CSF TEST ABNORMAL [None]
  - NUCLEAR MAGNETIC RESONANCE IMAGING BRAIN ABNORMAL [None]
  - THYROXINE FREE DECREASED [None]
  - VITAMIN B12 INCREASED [None]
